FAERS Safety Report 9887343 (Version 1)
Quarter: 2014Q1

REPORT INFORMATION
  Report Type: Spontaneous
  Country: CH (occurrence: CH)
  Receive Date: 20140211
  Receipt Date: 20140211
  Transmission Date: 20141002
  Serious: Yes (Life-Threatening, Other)
  Sender: FDA-Public Use
  Company Number: CH-009507513-1402CHE001579

PATIENT
  Age: 19 Year
  Sex: Female

DRUGS (1)
  1. NUVARING [Suspect]
     Indication: CONTRACEPTION
     Dosage: ONCE PER CYCLE, CYCLICAL
     Route: 067
     Dates: start: 201308, end: 20140126

REACTIONS (2)
  - Chest pain [Recovering/Resolving]
  - Pulmonary embolism [Recovering/Resolving]
